FAERS Safety Report 8111333-X (Version None)
Quarter: 2012Q1

REPORT INFORMATION
  Report Type: 
  Country: None (occurrence: None)
  Receive Date: 20120203
  Receipt Date: 20110908
  Transmission Date: 20120608
  Serious: No
  Sender: FDA-Public Use
  Company Number: US-GLAXOSMITHKLINE-A0943900A

PATIENT
  Age: 43 Year
  Sex: Female

DRUGS (5)
  1. PROZAC [Concomitant]
  2. TOPAMAX [Concomitant]
  3. WELLBUTRIN [Concomitant]
  4. LAMOTRIGINE [Suspect]
     Indication: BIPOLAR DISORDER
     Dosage: 25MG PER DAY
     Route: 048
     Dates: start: 20110803, end: 20110807
  5. ABILIFY [Concomitant]

REACTIONS (2)
  - RASH [None]
  - PRURITUS [None]
